FAERS Safety Report 8344505 (Version 4)
Quarter: 2013Q1

REPORT INFORMATION
  Report Type: Spontaneous
  Country: US (occurrence: US)
  Receive Date: 20120119
  Receipt Date: 20130110
  Transmission Date: 20140127
  Serious: Yes (Other)
  Sender: FDA-Public Use
  Company Number: US-ROCHE-734589

PATIENT
  Age: 15 Year
  Sex: Male
  Weight: 68 kg

DRUGS (3)
  1. ACCUTANE [Suspect]
     Indication: ACNE
     Route: 065
     Dates: start: 19991110, end: 200004
  2. ACCUTANE [Suspect]
     Route: 065
  3. CLARITIN [Concomitant]
     Dosage: FREQUENCY: BID
     Route: 048

REACTIONS (12)
  - Colitis ulcerative [Unknown]
  - Nausea [Unknown]
  - Abdominal pain [Unknown]
  - Rectal haemorrhage [Unknown]
  - Inflammatory bowel disease [Unknown]
  - Anxiety [Unknown]
  - Intestinal haemorrhage [Unknown]
  - Depression [Unknown]
  - Large intestine polyp [Unknown]
  - Lip dry [Unknown]
  - Rash [Unknown]
  - Inflammatory bowel disease [Unknown]
